FAERS Safety Report 11326904 (Version 1)
Quarter: 2015Q3

REPORT INFORMATION
  Report Type: Spontaneous
  Country: US (occurrence: None)
  Receive Date: 20150730
  Receipt Date: 20150730
  Transmission Date: 20151125
  Serious: Yes (Death)
  Sender: FDA-Public Use
  Company Number: None

PATIENT
  Age: 83 Year
  Sex: Male

DRUGS (8)
  1. HYDROCHLOROTHIAZIDE. [Concomitant]
     Active Substance: HYDROCHLOROTHIAZIDE
  2. LANSOPRAZOLE. [Concomitant]
     Active Substance: LANSOPRAZOLE
  3. ASA [Concomitant]
     Active Substance: ASPIRIN
  4. METOPROLOL [Concomitant]
     Active Substance: METOPROLOL
  5. ATORVASTATIN [Concomitant]
     Active Substance: ATORVASTATIN
  6. WARFARIN [Concomitant]
     Active Substance: WARFARIN
  7. COLCHICINE. [Suspect]
     Active Substance: COLCHICINE
     Indication: PROPHYLAXIS
     Route: 048
     Dates: start: 20150129, end: 20150207
  8. AMLODIPINE [Concomitant]
     Active Substance: AMLODIPINE BESYLATE

REACTIONS (24)
  - Nausea [None]
  - Transaminases increased [None]
  - Cardiac output decreased [None]
  - Headache [None]
  - Troponin increased [None]
  - Prerenal failure [None]
  - Cardiac failure [None]
  - Pericardial effusion [None]
  - Dehydration [None]
  - Acidosis [None]
  - International normalised ratio increased [None]
  - Upper respiratory tract infection [None]
  - Vomiting [None]
  - Diarrhoea [None]
  - Hypovolaemia [None]
  - Ventricular tachycardia [None]
  - Supraventricular tachycardia [None]
  - Toxicity to various agents [None]
  - Cardiac tamponade [None]
  - Syncope [None]
  - Pulseless electrical activity [None]
  - Malaise [None]
  - Accidental overdose [None]
  - Cardiomyopathy [None]

NARRATIVE: CASE EVENT DATE: 20150207
